FAERS Safety Report 8901050 (Version 3)
Quarter: 2013Q4

REPORT INFORMATION
  Report Type: Report from Study
  Country: CA (occurrence: CA)
  Receive Date: 20121109
  Receipt Date: 20131007
  Transmission Date: 20140711
  Serious: Yes (Hospitalization)
  Sender: FDA-Public Use
  Company Number: CA-TEVA-365165USA

PATIENT
  Age: 68 Year
  Sex: Male

DRUGS (14)
  1. GABAPENTIN [Suspect]
     Indication: PRODUCT USED FOR UNKNOWN INDICATION
  2. GLYBURIDE [Suspect]
     Indication: TYPE 2 DIABETES MELLITUS
  3. NORTRIPTYLINE [Suspect]
  4. SAXAGLIPTIN [Suspect]
     Indication: TYPE 2 DIABETES MELLITUS
     Dates: start: 20101101
  5. LANTUS [Suspect]
     Indication: TYPE 2 DIABETES MELLITUS
     Dates: start: 20120412
  6. PLACEBO [Suspect]
     Indication: TYPE 2 DIABETES MELLITUS
     Dates: start: 20101101
  7. FLOMAX [Suspect]
  8. ASPIRIN [Concomitant]
  9. EZETIMIBE [Concomitant]
  10. BETA BLOCKER [Concomitant]
  11. ANTI-COAGULANTS [Concomitant]
  12. FIBRIC ACID [Concomitant]
  13. ANGIOTENSIN II ANTAGONISTS [Concomitant]
  14. NITRATES [Concomitant]

REACTIONS (3)
  - Toxicity to various agents [Recovering/Resolving]
  - Vertigo [Recovering/Resolving]
  - Dizziness [Not Recovered/Not Resolved]
